FAERS Safety Report 10144865 (Version 1)
Quarter: 2014Q2

REPORT INFORMATION
  Report Type: Spontaneous
  Country: US (occurrence: US)
  Receive Date: 20140430
  Receipt Date: 20140430
  Transmission Date: 20141212
  Serious: No
  Sender: FDA-Public Use
  Company Number: US-SA-2014SA021507

PATIENT
  Sex: Female

DRUGS (2)
  1. LOVENOX [Suspect]
     Dosage: FOR 10 DAYS
     Route: 065
  2. HEPARIN [Suspect]
     Route: 065

REACTIONS (2)
  - Peripheral swelling [Unknown]
  - Platelet count decreased [Unknown]
